FAERS Safety Report 10079837 (Version 1)
Quarter: 2014Q2

REPORT INFORMATION
  Report Type: Report from Study
  Country: US (occurrence: US)
  Receive Date: 20140415
  Receipt Date: 20140415
  Transmission Date: 20141212
  Serious: Yes (Other)
  Sender: FDA-Public Use
  Company Number: US-ABBVIE-14P-163-1225736-00

PATIENT
  Sex: Female

DRUGS (2)
  1. LUPRON DEPOT [Suspect]
     Indication: ENDOMETRIOSIS
     Dates: start: 2006, end: 2006
  2. LUPRON DEPOT [Suspect]
     Dates: start: 2009, end: 2010

REACTIONS (2)
  - Abortion spontaneous [Unknown]
  - Pelvic pain [Unknown]
